FAERS Safety Report 9273335 (Version 2)
Quarter: 2013Q4

REPORT INFORMATION
  Report Type: Spontaneous
  Country: GB (occurrence: GB)
  Receive Date: 20130506
  Receipt Date: 20131011
  Transmission Date: 20140711
  Serious: Yes (Death, Hospitalization, Other)
  Sender: FDA-Public Use
  Company Number: PHHY2013GB043783

PATIENT
  Age: 46 Year
  Sex: Female

DRUGS (9)
  1. LEFLUNOMIDE [Suspect]
     Indication: RHEUMATOID ARTHRITIS
     Dosage: 10 MG, QD
     Route: 048
     Dates: start: 20060831, end: 20130123
  2. LEFLUNOMIDE [Suspect]
     Dosage: 20 MG, QD
     Route: 048
     Dates: start: 20130124, end: 20130328
  3. LEFLUNOMIDE [Suspect]
     Dosage: 20 MG, QD
     Dates: start: 20130328, end: 20130328
  4. NABUMETONE [Suspect]
     Indication: RHEUMATOID ARTHRITIS
     Dosage: 500MG - 1G TWICE DAILY
     Route: 048
     Dates: start: 20050407, end: 20130318
  5. NABUMETONE [Suspect]
     Dosage: TOOK OVERDOSE OF 23000 MG
     Route: 048
     Dates: start: 20130318, end: 20130318
  6. PARACETAMOL [Suspect]
     Indication: SUICIDE ATTEMPT
     Dosage: 52000 MG, OVERDOSE
     Route: 048
     Dates: start: 20130328, end: 20130328
  7. ADALIMUMAB [Concomitant]
     Dates: end: 20121210
  8. TRAZODONE [Concomitant]
     Dosage: UNK (TOOK OVERDOSE)
     Dates: start: 20121218, end: 20121220
  9. ORAMORPH [Concomitant]
     Dosage: UNK (TOOK OVERDOSE)
     Dates: start: 20121218, end: 20121220

REACTIONS (5)
  - Hepatic failure [Fatal]
  - Depressed level of consciousness [Not Recovered/Not Resolved]
  - Hypothermia [Not Recovered/Not Resolved]
  - Coma [Not Recovered/Not Resolved]
  - Overdose [Not Recovered/Not Resolved]
